FAERS Safety Report 21979784 (Version 4)
Quarter: 2024Q2

REPORT INFORMATION
  Report Type: Spontaneous
  Country: CA (occurrence: CA)
  Receive Date: 20230210
  Receipt Date: 20240409
  Transmission Date: 20240716
  Serious: Yes (Hospitalization, Other)
  Sender: FDA-Public Use
  Company Number: CA-TEVA-2023-CA-2852109

PATIENT
  Age: 53 Year
  Sex: Female

DRUGS (48)
  1. LORAZEPAM [Suspect]
     Active Substance: LORAZEPAM
     Indication: Product used for unknown indication
     Route: 065
  2. LORAZEPAM [Suspect]
     Active Substance: LORAZEPAM
     Indication: Product used for unknown indication
     Route: 065
  3. BIFIDOBACTERIUM LONGUM\LACTOBACILLUS ACIDOPHILUS [Interacting]
     Active Substance: BIFIDOBACTERIUM LONGUM\LACTOBACILLUS ACIDOPHILUS
     Indication: Product used for unknown indication
     Dosage: TIME INTERVAL: 0.333 DAYS
     Route: 048
  4. BIFIDOBACTERIUM LONGUM\LACTOBACILLUS ACIDOPHILUS [Interacting]
     Active Substance: BIFIDOBACTERIUM LONGUM\LACTOBACILLUS ACIDOPHILUS
     Indication: Product used for unknown indication
     Dosage: TIME INTERVAL: 0.333 DAYS
     Route: 048
  5. BUDESONIDE\FORMOTEROL FUMARATE DIHYDRATE [Interacting]
     Active Substance: BUDESONIDE\FORMOTEROL FUMARATE DIHYDRATE
     Indication: Product used for unknown indication
     Route: 065
  6. BUDESONIDE\FORMOTEROL FUMARATE DIHYDRATE [Interacting]
     Active Substance: BUDESONIDE\FORMOTEROL FUMARATE DIHYDRATE
     Indication: Product used for unknown indication
     Route: 065
  7. BUDESONIDE\FORMOTEROL FUMARATE DIHYDRATE [Interacting]
     Active Substance: BUDESONIDE\FORMOTEROL FUMARATE DIHYDRATE
     Indication: Product used for unknown indication
     Dosage: DOSE FROM: NOT SPECIFIED
     Route: 065
  8. LINOLEIC ACID, CONJUGATED [Interacting]
     Active Substance: LINOLEIC ACID, CONJUGATED
     Indication: Product used for unknown indication
     Dosage: TIME INTERVAL: 0.333 DAYS
     Route: 048
  9. LINOLEIC ACID, CONJUGATED [Interacting]
     Active Substance: LINOLEIC ACID, CONJUGATED
     Indication: Product used for unknown indication
     Dosage: TIME INTERVAL: 0.333 DAYS
     Route: 048
  10. ESTRADIOL [Interacting]
     Active Substance: ESTRADIOL
     Indication: Product used for unknown indication
     Route: 062
  11. ESTRADIOL [Interacting]
     Active Substance: ESTRADIOL
     Indication: Product used for unknown indication
     Route: 065
  12. ESTRADIOL [Interacting]
     Active Substance: ESTRADIOL
     Indication: Product used for unknown indication
     Route: 062
  13. ESTRADIOL [Interacting]
     Active Substance: ESTRADIOL
     Indication: Product used for unknown indication
     Route: 062
  14. ALCOHOL [Interacting]
     Active Substance: ALCOHOL
     Indication: Product used for unknown indication
     Route: 065
  15. FISH OIL [Interacting]
     Active Substance: FISH OIL
     Indication: Product used for unknown indication
     Route: 048
  16. FISH OIL [Interacting]
     Active Substance: FISH OIL
     Indication: Product used for unknown indication
     Route: 048
  17. DIMETHYL SULFONE [Interacting]
     Active Substance: DIMETHYL SULFONE
     Indication: Product used for unknown indication
     Route: 065
  18. DIMETHYL SULFONE [Interacting]
     Active Substance: DIMETHYL SULFONE
     Indication: Product used for unknown indication
     Dosage: TIME INTERVAL: 0.333 DAYS
     Route: 065
  19. VITAMIN D [Interacting]
     Active Substance: VITAMIN D NOS
     Indication: Product used for unknown indication
     Route: 048
  20. VITAMIN D [Interacting]
     Active Substance: VITAMIN D NOS
     Indication: Product used for unknown indication
     Route: 048
  21. SOMATROPIN [Interacting]
     Active Substance: SOMATROPIN
     Indication: Product used for unknown indication
     Route: 065
  22. VITAMINS NOS [Interacting]
     Active Substance: VITAMINS
     Indication: Product used for unknown indication
     Route: 048
  23. ALANINE\ARGININE\ASPARTIC ACID\DEXTROSE MONOHYDRATE\GLUTAMIC ACID\GLYC [Interacting]
     Active Substance: ALANINE\ARGININE\ASPARTIC ACID\DEXTROSE MONOHYDRATE\GLUTAMIC ACID\GLYCINE\HISTIDINE\ISOLEUCINE\LEUCI
     Indication: Product used for unknown indication
     Route: 048
  24. BIFIDOBACTERIUM LONGUM [Interacting]
     Active Substance: BIFIDOBACTERIUM LONGUM
     Indication: Product used for unknown indication
     Route: 065
  25. BIFIDOBACTERIUM LONGUM [Interacting]
     Active Substance: BIFIDOBACTERIUM LONGUM
     Indication: Product used for unknown indication
     Route: 048
  26. DOCONEXENT [Interacting]
     Active Substance: DOCONEXENT
     Indication: Product used for unknown indication
     Route: 048
  27. ICOSAPENT [Interacting]
     Active Substance: ICOSAPENT
     Indication: Product used for unknown indication
     Route: 048
  28. ICOSAPENT [Interacting]
     Active Substance: ICOSAPENT
     Indication: Product used for unknown indication
     Route: 065
  29. ERGOCALCIFEROL [Interacting]
     Active Substance: ERGOCALCIFEROL
     Indication: Product used for unknown indication
     Route: 048
  30. LACTOBACILLUS ACIDOPHILUS [Interacting]
     Active Substance: LACTOBACILLUS ACIDOPHILUS
     Indication: Product used for unknown indication
     Dosage: TIME INTERVAL: 0.333 DAYS
     Route: 065
  31. LACTOBACILLUS ACIDOPHILUS [Interacting]
     Active Substance: LACTOBACILLUS ACIDOPHILUS
     Indication: Product used for unknown indication
     Route: 048
  32. LACTOBACILLUS CASEI [Interacting]
     Active Substance: LACTOBACILLUS CASEI
     Indication: Product used for unknown indication
     Dosage: TIME INTERVAL: 0.333 DAYS
     Route: 065
  33. LACTOBACILLUS RHAMNOSUS [Interacting]
     Active Substance: LACTOBACILLUS RHAMNOSUS
     Indication: Product used for unknown indication
     Dosage: TIME INTERVAL: 0.333 DAYS
     Route: 065
  34. LINOLEIC ACID [Interacting]
     Active Substance: LINOLEIC ACID
     Indication: Product used for unknown indication
     Dosage: TIME INTERVAL: 0.333 DAYS
     Route: 048
  35. THIOCTIC ACID [Interacting]
     Active Substance: THIOCTIC ACID
     Indication: Product used for unknown indication
     Route: 065
  36. UBIDECARENONE [Interacting]
     Active Substance: UBIDECARENONE
     Indication: Product used for unknown indication
     Route: 065
  37. PROGESTERONE [Suspect]
     Active Substance: PROGESTERONE
     Indication: Product used for unknown indication
     Route: 065
  38. PROGESTERONE [Suspect]
     Active Substance: PROGESTERONE
     Indication: Product used for unknown indication
     Route: 065
  39. PROGESTERONE [Suspect]
     Active Substance: PROGESTERONE
     Indication: Product used for unknown indication
     Route: 048
  40. VITAMIN A [Interacting]
     Active Substance: VITAMIN A
     Indication: Product used for unknown indication
     Route: 048
  41. ASCORBIC ACID [Interacting]
     Active Substance: ASCORBIC ACID
     Indication: Product used for unknown indication
     Route: 048
  42. .ALPHA.-TOCOPHEROL [Interacting]
     Active Substance: .ALPHA.-TOCOPHEROL
     Indication: Product used for unknown indication
     Route: 065
  43. .ALPHA.-TOCOPHEROL [Interacting]
     Active Substance: .ALPHA.-TOCOPHEROL
     Indication: Product used for unknown indication
     Route: 048
  44. VARENICLINE [Suspect]
     Active Substance: VARENICLINE
     Indication: Product used for unknown indication
     Route: 065
  45. VARENICLINE [Suspect]
     Active Substance: VARENICLINE
     Indication: Product used for unknown indication
     Route: 065
  46. VARENICLINE [Suspect]
     Active Substance: VARENICLINE
     Indication: Product used for unknown indication
     Route: 065
  47. VENLAFAXINE [Suspect]
     Active Substance: VENLAFAXINE HYDROCHLORIDE
     Indication: Product used for unknown indication
     Route: 065
  48. .ALPHA.-TOCOPHEROL, D- [Interacting]
     Active Substance: .ALPHA.-TOCOPHEROL, D-
     Indication: Product used for unknown indication
     Route: 048

REACTIONS (7)
  - Drug-induced liver injury [Unknown]
  - Hepatic cirrhosis [Unknown]
  - Hepatic encephalopathy [Unknown]
  - Hepatic necrosis [Unknown]
  - Drug interaction [Unknown]
  - Hepatotoxicity [Unknown]
  - Hepatotoxicity [Unknown]
